FAERS Safety Report 25863223 (Version 1)
Quarter: 2025Q3

REPORT INFORMATION
  Report Type: Report from Study
  Country: CA (occurrence: CA)
  Receive Date: 20250930
  Receipt Date: 20250930
  Transmission Date: 20251020
  Serious: Yes (Hospitalization, Other)
  Sender: ABBVIE
  Company Number: CA-ABBVIE-6478542

PATIENT
  Age: 71 Year
  Sex: Female
  Weight: 68.4 kg

DRUGS (1)
  1. RINVOQ [Suspect]
     Active Substance: UPADACITINIB
     Indication: Rheumatoid arthritis
     Route: 048
     Dates: start: 202111

REACTIONS (9)
  - Internal haemorrhage [Unknown]
  - Influenza [Unknown]
  - Liver function test increased [Unknown]
  - Cholecystectomy [Unknown]
  - Bile duct stone [Unknown]
  - Asthenia [Unknown]
  - Spinal deformity [Unknown]
  - Back disorder [Recovered/Resolved]
  - Back disorder [Unknown]

NARRATIVE: CASE EVENT DATE: 20220101
